FAERS Safety Report 11095154 (Version 1)
Quarter: 2015Q2

REPORT INFORMATION
  Report Type: Spontaneous
  Country: US (occurrence: US)
  Receive Date: 20150506
  Receipt Date: 20150506
  Transmission Date: 20150821
  Serious: No
  Sender: FDA-Public Use
  Company Number: US-SA-2014SA089040

PATIENT
  Age: 35 Year
  Sex: Female

DRUGS (4)
  1. APIDRA SOLOSTAR [Suspect]
     Active Substance: INSULIN GLULISINE
     Indication: TYPE 2 DIABETES MELLITUS
     Dosage: FREQUENCY: MEALTIMES?DOSE: 4-9 UNITS, MEALS
     Route: 065
     Dates: start: 20140626
  2. LYRICA [Concomitant]
     Active Substance: PREGABALIN
  3. SOLOSTAR [Concomitant]
     Active Substance: DEVICE
     Indication: TYPE 2 DIABETES MELLITUS
     Dates: start: 20140626
  4. LANTUS [Concomitant]
     Active Substance: INSULIN GLARGINE

REACTIONS (4)
  - Dyskinesia [Unknown]
  - Stress [Unknown]
  - Hypoglycaemia [Unknown]
  - Cold sweat [Unknown]
